FAERS Safety Report 21015926 (Version 1)
Quarter: 2022Q2

REPORT INFORMATION
  Report Type: Spontaneous
  Country: US (occurrence: None)
  Receive Date: 20220627
  Receipt Date: 20220627
  Transmission Date: 20220721
  Serious: No
  Sender: FDA-Public Use
  Company Number: None

PATIENT
  Age: 49 Year
  Sex: Female

DRUGS (1)
  1. COSENTYX [Suspect]
     Active Substance: SECUKINUMAB
     Indication: Psoriasis
     Dosage: OTHER FREQUENCY : WK FOR 5 WKS;?INJECT 300MG (2 PENS) SUBCUTANEOUSLY ONCE A WEEK FOR?5 WEEKS AS DIRE
     Route: 058
     Dates: start: 202110

REACTIONS (1)
  - Upper respiratory tract infection [None]
